FAERS Safety Report 12035507 (Version 2)
Quarter: 2016Q1

REPORT INFORMATION
  Report Type: Other
  Country: US (occurrence: US)
  Receive Date: 20160207
  Receipt Date: 20160219
  Transmission Date: 20160526
  Serious: Yes (Disabling, Other)
  Sender: FDA-Public Use
  Company Number: US-ACORDA-ACO_108054_2014

PATIENT
  Age: 53 Year
  Sex: Female
  Weight: 66.21 kg

DRUGS (3)
  1. TYSABRI [Concomitant]
     Active Substance: NATALIZUMAB
     Indication: PRODUCT USED FOR UNKNOWN INDICATION
     Dosage: UNK
     Dates: start: 2012
  2. COPAXONE [Concomitant]
     Active Substance: GLATIRAMER ACETATE
     Indication: PRODUCT USED FOR UNKNOWN INDICATION
     Dosage: UNK
  3. AMPYRA [Suspect]
     Active Substance: DALFAMPRIDINE
     Indication: GAIT DISTURBANCE
     Dosage: 10 MG, BID
     Route: 048
     Dates: start: 2011

REACTIONS (6)
  - Gait disturbance [Recovered/Resolved]
  - JC virus test positive [Unknown]
  - Wheelchair user [Recovered/Resolved]
  - Headache [Recovering/Resolving]
  - Drug ineffective [Unknown]
  - Multiple sclerosis relapse [Recovered/Resolved]

NARRATIVE: CASE EVENT DATE: 201304
